FAERS Safety Report 7982725-4 (Version None)
Quarter: 2011Q4

REPORT INFORMATION
  Report Type: 
  Country: None (occurrence: None)
  Receive Date: 20111215
  Receipt Date: 20111031
  Transmission Date: 20120403
  Serious: Yes (Hospitalization)
  Sender: FDA-Public Use
  Company Number: US-ROCHE-788518

PATIENT
  Sex: Male
  Weight: 86.7 kg

DRUGS (44)
  1. AVASTIN [Suspect]
     Route: 042
  2. TEMSIROLIMUS [Suspect]
     Route: 042
  3. ACETAMINOPHEN [Concomitant]
     Dosage: FREQUENCY: AS NEEDED 1-2 TABLETS EVERY 8 HOURS.
     Route: 048
  4. INSULIN LISPRO [Concomitant]
  5. AVASTIN [Suspect]
     Indication: METASTATIC RENAL CELL CARCINOMA
     Dosage: DAY 1 AND DAY 15 EACH
     Route: 042
     Dates: start: 20110427, end: 20110810
  6. AVASTIN [Suspect]
     Route: 042
  7. TEMSIROLIMUS [Suspect]
     Route: 042
  8. TEMSIROLIMUS [Suspect]
     Route: 042
  9. TEMSIROLIMUS [Suspect]
     Route: 042
  10. FENTANYL [Concomitant]
     Dosage: 1 PATCH TO SKIN EVERY 3 DAYS
     Route: 061
  11. FUROSEMIDE [Concomitant]
     Route: 048
  12. PANTOPRAZOLE [Concomitant]
     Dosage: E. C. TABLETS
     Route: 048
  13. POLYETHYLENE GLYCOL [Concomitant]
     Route: 048
  14. VALSARTAN [Concomitant]
     Route: 048
  15. LOPERAMIDE HCL [Concomitant]
     Dosage: DOSE: 1 MG/7.5 ML, FREQUENCY: AS NEEDED 7.5 ML
     Route: 048
  16. MAGNESIUM CITRATE [Concomitant]
     Dosage: FREQUENCY: QPM
     Route: 048
  17. TEMSIROLIMUS [Suspect]
     Indication: METASTATIC RENAL CELL CARCINOMA
     Dosage: DAY 1, 8, 15 AND 32 EACH CYCLE
     Route: 042
     Dates: start: 20110427, end: 20110817
  18. TEMSIROLIMUS [Suspect]
     Route: 042
  19. TEMSIROLIMUS [Suspect]
     Route: 042
     Dates: start: 20110810, end: 20110817
  20. POLYETHYLENE GLYCOL [Concomitant]
     Dosage: DOSE: 17 GRAM, FREQUENCY: AS NEEDED
     Route: 061
  21. SENNA-MINT WAF [Concomitant]
     Dosage: FREQUENCY: AS NEEDED 2 TABLETS PER DAY
     Route: 048
  22. DOCUSATE SODIUM [Concomitant]
     Dosage: 8.5 MG TO 50 MG
     Route: 048
  23. AVASTIN [Suspect]
     Route: 042
  24. TEMSIROLIMUS [Suspect]
     Route: 042
  25. ALLOPURINOL [Concomitant]
     Route: 048
  26. CLONIDINE [Concomitant]
     Route: 048
  27. DIPHENHYDRAMINE HCL [Concomitant]
     Dosage: 30 MINUTES BEFORE TEMSIROLIMUS
     Route: 042
  28. MAGIC MOUTHWASH NOS [Concomitant]
     Dosage: ROUTE: ORAL RINSE, DOSE: 1 TABLESPOON, FREQUENCY: AS NEEDED EVERY 4-6 HOURS
     Route: 050
  29. OXYCODONE HCL [Concomitant]
     Dosage: FREQUENCY: 1-2 TABLETS AS NEEDED EVERY 4-6 HOURS
     Route: 048
  30. TEMSIROLIMUS [Suspect]
     Route: 042
  31. PROCHLORPERAZINE MALEATE [Concomitant]
     Dosage: FREQUENCY: AS NEEDED EVERY 6 HOURS.
     Route: 048
  32. OXYBUTYNIN CHLORIDE [Concomitant]
     Dosage: FREQUENCY: 1 TABLET BY MOUTH AT BEDTIME
     Route: 048
  33. POLYETHYLENE GLYCOL [Concomitant]
     Dosage: FREQUENCY: DAILY PER INSTRUCTIONS
     Route: 048
  34. TEMSIROLIMUS [Suspect]
     Route: 042
  35. XALATAN [Concomitant]
     Dosage: 1 DROP IN LEFT EYE AT NIGHT TIME.
     Route: 047
  36. MEGESTROL ACETATE [Concomitant]
     Dosage: DOSE: 625MG/ 5ML (1 TEASPOON) FREQUENCY: DAILY
     Route: 048
  37. PHENAZOPYRIDINE HCL TAB [Concomitant]
     Route: 048
  38. AVASTIN [Suspect]
     Route: 042
     Dates: start: 20110810, end: 20110810
  39. LEVOTHYROXINE SODIUM [Concomitant]
     Route: 048
  40. NIFEDIPINE [Concomitant]
     Dosage: REPORTED AS E R TABLETS
     Route: 048
  41. AVASTIN [Suspect]
     Route: 042
  42. PHOSPHA 250 NEUTRAL [Concomitant]
     Route: 048
  43. TAMSULOSIN HCL [Concomitant]
     Dosage: FREQUENCY: 1 CAPSULE AT BEDTIME
     Route: 048
  44. FERROUS SULFATE TAB [Concomitant]

REACTIONS (10)
  - PNEUMONITIS [None]
  - HAEMOGLOBIN DECREASED [None]
  - INFLUENZA LIKE ILLNESS [None]
  - PNEUMONIA [None]
  - EPISTAXIS [None]
  - DYSPNOEA [None]
  - PYREXIA [None]
  - DYSPHAGIA [None]
  - CHILLS [None]
  - MALAISE [None]
